FAERS Safety Report 10608288 (Version 2)
Quarter: 2014Q4

REPORT INFORMATION
  Report Type: Spontaneous
  Country: US (occurrence: US)
  Receive Date: 20141125
  Receipt Date: 20141205
  Transmission Date: 20150529
  Serious: Yes (Other)
  Sender: FDA-Public Use
  Company Number: CHPA2014US015579

PATIENT
  Age: 2 Year
  Sex: Male

DRUGS (3)
  1. VOLTAREN [Suspect]
     Active Substance: DICLOFENAC SODIUM
     Indication: PRODUCT USED FOR UNKNOWN INDICATION
     Dosage: SMALL AMOUNT, ONCE/SINGLE
     Route: 048
     Dates: start: 20141113, end: 20141113
  2. IBUPROFEN. [Suspect]
     Active Substance: IBUPROFEN
     Indication: ORAL MUCOSAL BLISTERING
  3. IBUPROFEN. [Suspect]
     Active Substance: IBUPROFEN
     Indication: PYREXIA
     Dosage: 100 MG, UNK
     Route: 048
     Dates: start: 20141118

REACTIONS (13)
  - Cheilitis [Recovered/Resolved]
  - Lip dry [Recovered/Resolved]
  - Abdominal pain upper [Recovered/Resolved]
  - Faeces discoloured [Recovered/Resolved]
  - Vomiting [Recovered/Resolved]
  - Influenza [Recovered/Resolved]
  - Accidental exposure to product by child [Unknown]
  - Diarrhoea [Recovered/Resolved]
  - Crying [Recovered/Resolved]
  - Feeding disorder [Recovered/Resolved]
  - Expired product administered [Unknown]
  - Oropharyngeal blistering [Recovered/Resolved]
  - Pyrexia [Recovered/Resolved]

NARRATIVE: CASE EVENT DATE: 201411
